FAERS Safety Report 7705334-0 (Version None)
Quarter: 2011Q3

REPORT INFORMATION
  Report Type: 
  Country: None (occurrence: None)
  Receive Date: 20110824
  Receipt Date: 20110811
  Transmission Date: 20111222
  Serious: Yes (Death, Hospitalization)
  Sender: FDA-Public Use
  Company Number: IT-JNJFOC-20110701209

PATIENT
  Sex: Male
  Weight: 78 kg

DRUGS (4)
  1. EPREX [Concomitant]
     Indication: ILL-DEFINED DISORDER
     Route: 058
     Dates: start: 20110504
  2. FERRITIN [Concomitant]
     Indication: PRODUCT USED FOR UNKNOWN INDICATION
     Dosage: 2 FT
     Route: 065
     Dates: start: 20110504
  3. ABIRATERONE ACETATE [Suspect]
     Route: 048
  4. ABIRATERONE ACETATE [Suspect]
     Indication: PROSTATE CANCER METASTATIC
     Route: 048
     Dates: start: 20110527, end: 20110614

REACTIONS (2)
  - PROSTATE CANCER [None]
  - PANCYTOPENIA [None]
